FAERS Safety Report 4416995-6 (Version None)
Quarter: 2004Q3

REPORT INFORMATION
  Report Type: 
  Country: None (occurrence: None)
  Receive Date: 20040806
  Receipt Date: 20040604
  Transmission Date: 20050211
  Serious: No
  Sender: FDA-Public Use
  Company Number: US-GLAXOSMITHKLINE-A0513577A

PATIENT
  Age: 59 Year
  Sex: Female

DRUGS (1)
  1. MALARONE [Suspect]
     Indication: MALARIA
     Dosage: 250MG PER DAY
     Route: 048
     Dates: start: 20040414, end: 20040417

REACTIONS (2)
  - NAUSEA [None]
  - VOMITING [None]
